FAERS Safety Report 6027191-3 (Version None)
Quarter: 2009Q1

REPORT INFORMATION
  Report Type: 
  Country: None (occurrence: None)
  Receive Date: 20090105
  Receipt Date: 20081231
  Transmission Date: 20090719
  Serious: Yes (Death)
  Sender: FDA-Public Use
  Company Number: NL-AVENTIS-200821904GDDC

PATIENT
  Age: 52 Year
  Sex: Male

DRUGS (5)
  1. DOCETAXEL [Suspect]
     Route: 042
     Dates: start: 20081219, end: 20081219
  2. CISPLATIN [Suspect]
     Route: 042
     Dates: start: 20081219, end: 20081219
  3. FLUOROURACIL [Suspect]
     Route: 042
     Dates: start: 20081219, end: 20081223
  4. PRIMPERAN                          /00041901/ [Concomitant]
  5. METOPROLOL [Concomitant]

REACTIONS (1)
  - SUDDEN DEATH [None]
